FAERS Safety Report 10968778 (Version 1)
Quarter: 2015Q1

REPORT INFORMATION
  Report Type: Spontaneous
  Country: US (occurrence: US)
  Receive Date: 20150331
  Receipt Date: 20150331
  Transmission Date: 20150721
  Serious: Yes (Hospitalization, Disabling)
  Sender: FDA-Public Use
  Company Number: US-UCBSA-2014008770

PATIENT
  Age: 59 Year
  Sex: Female

DRUGS (5)
  1. XYREM [Interacting]
     Active Substance: SODIUM OXYBATE
     Dosage: DOSE ADJUSTMENTS
     Route: 048
  2. XYREM [Suspect]
     Active Substance: SODIUM OXYBATE
     Indication: NARCOLEPSY
     Dosage: 0.75 G, 2X/DAY (BID) TWICE NIGHTLY
     Route: 048
     Dates: start: 200602, end: 2006
  3. XYREM [Interacting]
     Active Substance: SODIUM OXYBATE
     Dosage: 4.5 G, 2X/DAY (BID)
     Route: 048
     Dates: start: 200903, end: 2013
  4. XYREM [Interacting]
     Active Substance: SODIUM OXYBATE
     Dosage: 9 G, ONCE DAILY (QD) NIGHTLY
     Route: 048
     Dates: start: 2013, end: 2014
  5. MORPHINE [Interacting]
     Active Substance: MORPHINE
     Indication: PELVIC PAIN
     Dosage: UNK
     Dates: start: 2014

REACTIONS (13)
  - Joint injury [Recovering/Resolving]
  - Pneumonia [Recovered/Resolved]
  - Inappropriate schedule of drug administration [Unknown]
  - Malaise [Not Recovered/Not Resolved]
  - Dehydration [Recovered/Resolved]
  - Hypersensitivity [Not Recovered/Not Resolved]
  - Drug interaction [Unknown]
  - Off label use [Unknown]
  - Fatigue [Recovered/Resolved]
  - Pyrexia [Recovered/Resolved]
  - Arthralgia [Recovered/Resolved]
  - Pelvic pain [Recovered/Resolved]
  - Stress [Recovered/Resolved]

NARRATIVE: CASE EVENT DATE: 2013
